FAERS Safety Report 17745054 (Version 1)
Quarter: 2020Q2

REPORT INFORMATION
  Report Type: Spontaneous
  Country: US (occurrence: US)
  Receive Date: 20200504
  Receipt Date: 20200504
  Transmission Date: 20200714
  Serious: Yes (Other)
  Sender: FDA-Public Use
  Company Number: US-PURDUE PHARMA-USA-2020-0152388

PATIENT
  Sex: Female

DRUGS (2)
  1. XANAX [Concomitant]
     Active Substance: ALPRAZOLAM
     Indication: PRODUCT USED FOR UNKNOWN INDICATION
  2. MORPHINE SULFATE EXTENDED-RELEASE TABLETS (RHODES 74-769) [Suspect]
     Active Substance: MORPHINE SULFATE
     Indication: PAIN
     Dosage: UNK
     Route: 048
     Dates: start: 2008

REACTIONS (19)
  - Herpes zoster oticus [Unknown]
  - Pruritus [Recovered/Resolved]
  - Small cell lung cancer [Unknown]
  - Multiple fractures [Unknown]
  - Connective tissue disorder [Unknown]
  - Palpitations [Unknown]
  - Sensory loss [Unknown]
  - Hallucination [Recovered/Resolved]
  - Insomnia [Recovered/Resolved]
  - Erythema [Recovered/Resolved]
  - Cough [Unknown]
  - Organ failure [Unknown]
  - Postural orthostatic tachycardia syndrome [Unknown]
  - Memory impairment [Unknown]
  - Cognitive disorder [Unknown]
  - Osteoporosis [Unknown]
  - Central nervous system lesion [Unknown]
  - Osteoarthritis [Unknown]
  - Dyspnoea [Recovered/Resolved]

NARRATIVE: CASE EVENT DATE: 2008
